FAERS Safety Report 19990610 (Version 1)
Quarter: 2021Q4

REPORT INFORMATION
  Report Type: Spontaneous
  Country: US (occurrence: US)
  Receive Date: 20211022
  Receipt Date: 20211022
  Transmission Date: 20220303
  Serious: Yes (Death, Hospitalization)
  Sender: FDA-Public Use
  Company Number: None

PATIENT
  Age: 60 Year
  Sex: Male
  Weight: 66.13 kg

DRUGS (1)
  1. RITUXIMAB [Suspect]
     Active Substance: RITUXIMAB
     Dates: end: 20210729

REACTIONS (5)
  - COVID-19 pneumonia [None]
  - Infection [None]
  - General physical health deterioration [None]
  - Hypotension [None]
  - Arrhythmia [None]

NARRATIVE: CASE EVENT DATE: 20211011
